FAERS Safety Report 19978546 (Version 1)
Quarter: 2021Q4

REPORT INFORMATION
  Report Type: Spontaneous
  Country: US (occurrence: US)
  Receive Date: 20211021
  Receipt Date: 20211021
  Transmission Date: 20220303
  Serious: Yes (Life-Threatening, Hospitalization)
  Sender: FDA-Public Use
  Company Number: None

PATIENT
  Age: 61 Year
  Sex: Male
  Weight: 86 kg

DRUGS (2)
  1. HYDROCHLOROTHIAZIDE [Suspect]
     Active Substance: HYDROCHLOROTHIAZIDE
     Indication: Hypertension
     Route: 048
     Dates: start: 20210216, end: 20210312
  2. DULOXETINE [Suspect]
     Active Substance: DULOXETINE
     Indication: Pain
     Dates: start: 20210216, end: 20210312

REACTIONS (3)
  - Hyponatraemia [None]
  - Knee arthroplasty [None]
  - Treatment delayed [None]

NARRATIVE: CASE EVENT DATE: 20210310
